FAERS Safety Report 8788713 (Version 2)
Quarter: 2012Q4

REPORT INFORMATION
  Report Type: 
  Country: SE (occurrence: SE)
  Receive Date: 20120916
  Receipt Date: 20120921
  Transmission Date: 20130627
  Serious: Yes (Hospitalization)
  Sender: FDA-Public Use
  Company Number: PHHY2012SE079661

PATIENT
  Sex: Male

DRUGS (6)
  1. RITALINE [Suspect]
     Dosage: 4 DF, TID
     Dates: start: 201204, end: 201207
  2. RITALINE [Suspect]
     Route: 048
     Dates: start: 20120918
  3. AMPHETAMINE [Concomitant]
  4. IKTORIVIL [Concomitant]
     Dosage: 1 DF, QID
  5. MIRTAZAPINE [Concomitant]
     Dosage: 1 DF in the morning, 2 DF in evening
  6. IMOVANE [Concomitant]
     Dosage: 7.5 mg, Once daily

REACTIONS (6)
  - Sepsis [Unknown]
  - Endocarditis [Unknown]
  - Sinus tachycardia [Unknown]
  - Heart rate increased [Unknown]
  - Asthenia [Unknown]
  - Fatigue [Unknown]
